FAERS Safety Report 16854096 (Version 1)
Quarter: 2019Q4

REPORT INFORMATION
  Report Type: Spontaneous
  Country: US (occurrence: US)
  Receive Date: 20190926
  Receipt Date: 20190926
  Transmission Date: 20200122
  Serious: Yes (Hospitalization)
  Sender: FDA-Public Use
  Company Number: None

PATIENT
  Age: 13 Year

DRUGS (2)
  1. HUMIRA [Suspect]
     Active Substance: ADALIMUMAB
     Indication: CROHN^S DISEASE
     Dosage: ?          OTHER FREQUENCY:ONCE A WEEK;?
     Route: 058
  2. FIRVANQ [Concomitant]
     Active Substance: VANCOMYCIN HYDROCHLORIDE

REACTIONS (3)
  - Infection [None]
  - Weight fluctuation [None]
  - Diarrhoea [None]

NARRATIVE: CASE EVENT DATE: 20190925
